FAERS Safety Report 11848876 (Version 1)
Quarter: 2015Q4

REPORT INFORMATION
  Report Type: Other
  Country: US (occurrence: GH)
  Receive Date: 20151218
  Receipt Date: 20151218
  Transmission Date: 20160305
  Serious: Yes (Other)
  Sender: FDA-Public Use
  Company Number: US-LUPIN PHARMACEUTICALS INC.-2015-04140

PATIENT
  Age: 71 Year
  Sex: Male

DRUGS (2)
  1. DOXYCYCLINE. [Concomitant]
     Active Substance: DOXYCYCLINE
     Indication: CEREBRAL MALARIA
     Route: 065
  2. QUININE [Suspect]
     Active Substance: QUININE
     Indication: CEREBRAL MALARIA
     Route: 065

REACTIONS (1)
  - Hyperinsulinaemic hypoglycaemia [Unknown]
